FAERS Safety Report 5801700-9 (Version None)
Quarter: 2008Q3

REPORT INFORMATION
  Report Type: 
  Country: None (occurrence: None)
  Receive Date: 20080707
  Receipt Date: 20080623
  Transmission Date: 20090109
  Serious: Yes (Life-Threatening)
  Sender: FDA-Public Use
  Company Number: B0527051A

PATIENT
  Age: 65 Year
  Sex: Male

DRUGS (19)
  1. DEROXAT [Suspect]
     Indication: DEPRESSION
     Route: 048
     Dates: end: 20080402
  2. TAHOR [Suspect]
     Indication: PROPHYLAXIS
     Dosage: 40MG PER DAY
     Route: 048
     Dates: start: 20080320, end: 20080402
  3. CORDARONE [Suspect]
     Dosage: 1UNIT SEE DOSAGE TEXT
     Route: 048
     Dates: end: 20080402
  4. XYZAL [Suspect]
     Dosage: 1UNIT PER DAY
     Route: 048
     Dates: end: 20080402
  5. INIPOMP [Suspect]
     Indication: GASTRITIS
     Route: 048
     Dates: start: 20080327, end: 20080402
  6. FLIXOTIDE [Concomitant]
     Route: 065
  7. VENTOLIN [Concomitant]
     Indication: PAINFUL RESPIRATION
     Route: 055
  8. LASIX [Concomitant]
     Route: 065
  9. POTASSIUM CHLORIDE [Concomitant]
     Dosage: 1TAB TWICE PER DAY
     Route: 048
  10. BISOPROLOL FUMARATE [Concomitant]
     Indication: ARTERIAL STENOSIS
     Route: 065
     Dates: start: 20080320
  11. FORADIL [Concomitant]
     Dosage: .25MG TWICE PER DAY
     Route: 065
  12. DIGOXIN [Concomitant]
     Route: 065
  13. KARDEGIC [Concomitant]
     Indication: ARTERIAL STENOSIS
     Route: 065
     Dates: start: 20080320
  14. IMOVANE [Concomitant]
     Route: 065
  15. HEXAQUINE [Concomitant]
     Dosage: 2TAB AS REQUIRED
     Route: 048
  16. RAMIPRIL [Concomitant]
     Indication: ARTERIAL STENOSIS
     Dosage: 1.25MG PER DAY
     Route: 065
     Dates: start: 20080320
  17. PREVISCAN [Concomitant]
     Route: 065
     Dates: start: 20080401
  18. CALCIPARINE [Concomitant]
     Route: 065
     Dates: start: 20080401
  19. ISOPTIN [Concomitant]
     Route: 048
     Dates: start: 20080401

REACTIONS (14)
  - CARDIAC FAILURE [None]
  - CHOLESTASIS [None]
  - CYTOLYTIC HEPATITIS [None]
  - DERMATITIS EXFOLIATIVE [None]
  - ENCEPHALOPATHY [None]
  - FLUID OVERLOAD [None]
  - HEPATITIS FULMINANT [None]
  - HEPATOCELLULAR INJURY [None]
  - JAUNDICE [None]
  - RALES [None]
  - RENAL FAILURE ACUTE [None]
  - RENAL IMPAIRMENT [None]
  - THROMBOCYTOPENIA [None]
  - TOXIC SKIN ERUPTION [None]
